FAERS Safety Report 23850638 (Version 2)
Quarter: 2024Q2

REPORT INFORMATION
  Report Type: Spontaneous
  Country: ZA (occurrence: ZA)
  Receive Date: 20240513
  Receipt Date: 20240626
  Transmission Date: 20240716
  Serious: Yes (Death)
  Sender: FDA-Public Use
  Company Number: ZA-ABBOTT-2024A-1381140

PATIENT
  Age: 84 Year
  Sex: Male

DRUGS (25)
  1. CREON [Suspect]
     Active Substance: PANCRELIPASE AMYLASE\PANCRELIPASE LIPASE\PANCRELIPASE PROTEASE
     Indication: Pancreatic failure
     Dosage: 300 MG TAKE ONE CAPSULE THREE TIMES A DAY, CREON 25000 [MULTIENZYMES (LIPASE PROTEASE ETC.)]
     Route: 048
  2. ONDANSETRON HYDROCHLORIDE [Concomitant]
     Active Substance: ONDANSETRON HYDROCHLORIDE
     Indication: Product used for unknown indication
     Dosage: 8 MG TAKE ONE TABLET THREE TIMES A DAY
     Route: 048
  3. FENTANYL [Concomitant]
     Active Substance: FENTANYL\FENTANYL CITRATE
     Indication: Pain
     Dosage: 25 MCG APPLY ONE PATCH EVERY THREE DAYS
  4. Dexona [Concomitant]
     Indication: Product used for unknown indication
     Dosage: 4 MG AS PRESCRIBED
  5. DOMADOL [Concomitant]
     Indication: Pain
     Dosage: 50 MG TAKE ONE CAPSULE WHEN NECESSARY
     Route: 048
  6. AMOXICILLIN\CLAVULANIC ACID [Concomitant]
     Active Substance: AMOXICILLIN\CLAVULANIC ACID
     Indication: Product used for unknown indication
     Dosage: 1000 MG TAKE ONE TABLET TWICE A DAY
     Route: 048
  7. FUROSEMIDE [Concomitant]
     Active Substance: FUROSEMIDE
     Indication: Hypertension
     Dosage: 40 MG TAKE HALF A TABLET ONCE DAILY
     Route: 048
  8. CYCLIZINE [Concomitant]
     Active Substance: CYCLIZINE
     Indication: Product used for unknown indication
     Dosage: 50 MG AS PRESCRIBED
  9. CITALOPRAM HYDROBROMIDE [Concomitant]
     Active Substance: CITALOPRAM HYDROBROMIDE
     Indication: Depression
     Dosage: 20 MG TAKE ONE TABLET ONCE DAILY
     Route: 048
  10. GRANISETRON FRESENIUS [Concomitant]
     Indication: Product used for unknown indication
     Dosage: 3 MG AS PRESCRIBED
  11. POTASSIUM CHLORIDE [Concomitant]
     Active Substance: POTASSIUM CHLORIDE
     Indication: Hypokalaemia
     Dosage: 600 MG TAKE ONE TABLET ONCE DAILY, PLENISH-K SR
     Route: 048
  12. GEMCITABINE HYDROCHLORIDE [Concomitant]
     Active Substance: GEMCITABINE HYDROCHLORIDE
     Indication: Neoplasm malignant
     Dosage: 200 MG AS PRESCRIBED
  13. GEMCITABINE HYDROCHLORIDE [Concomitant]
     Active Substance: GEMCITABINE HYDROCHLORIDE
     Indication: Neoplasm malignant
     Dosage: 1 G AS PRESCRIBED
  14. MACRODANTIN [Concomitant]
     Active Substance: NITROFURANTOIN
     Indication: Urinary tract infection
     Dosage: 100 MG TAKE ONE CAPSULE AT NIGHT
     Route: 048
  15. SODIUM CHLORIDE [Concomitant]
     Active Substance: SODIUM CHLORIDE
     Indication: Product used for unknown indication
     Dosage: AS PRESCRIBED
  16. ONDANSETRON [Concomitant]
     Active Substance: ONDANSETRON
     Indication: Product used for unknown indication
     Dosage: 8 MG DISPERSE ONE TABLET IN WATER THREE TIMES A DAY
  17. Tractinfect [Concomitant]
     Indication: Product used for unknown indication
     Dosage: 3 G ONE SACHET DISSOLVED IN WATER ON ALTERNATE DAYS
  18. METOCLOPRAMIDE HYDROCHLORIDE [Concomitant]
     Active Substance: METOCLOPRAMIDE HYDROCHLORIDE
     Indication: Product used for unknown indication
     Dosage: 10 MG TAKE ONE TABLET THREE TIMES A DAY
     Route: 048
  19. DEVICE\POLYURETHANE [Concomitant]
     Active Substance: DEVICE\POLYURETHANE
     Indication: Product used for unknown indication
     Dosage: 60X70MM 1623W AS PRESCRIBED, DRESSING
  20. MEDROL [Concomitant]
     Active Substance: METHYLPREDNISOLONE
     Indication: Product used for unknown indication
     Dosage: 4 MG TAKE ONE TABLET ONCE DAILY
     Route: 048
  21. FERROUS BISGLYCINATE\FOLIC ACID [Concomitant]
     Active Substance: FERROUS BISGLYCINATE\FOLIC ACID
     Indication: Product used for unknown indication
     Dosage: 24 MG TAKE ONE TABLET ONCE DAILY
     Route: 048
  22. SODIUM CHLORIDE [Concomitant]
     Active Substance: SODIUM CHLORIDE
     Indication: Product used for unknown indication
     Dosage: AS PRESCRIBED
  23. PREDNISOLONE CAPROATE [Concomitant]
     Indication: Product used for unknown indication
     Dosage: USE LOCALLY WHEN NECESSARY
  24. DEXTROSE\SODIUM CHLORIDE [Concomitant]
     Active Substance: DEXTROSE\SODIUM CHLORIDE
     Indication: Product used for unknown indication
     Dosage: AS PRESCRIBED
  25. PYNSTOP [Concomitant]
     Indication: Product used for unknown indication
     Dosage: AS PRESCRIBED

REACTIONS (1)
  - Neoplasm malignant [Fatal]
